FAERS Safety Report 11199075 (Version 1)
Quarter: 2015Q2

REPORT INFORMATION
  Report Type: Spontaneous
  Country: US (occurrence: None)
  Receive Date: 20150616
  Receipt Date: 20150616
  Transmission Date: 20150821
  Serious: Yes (Life-Threatening, Other)
  Sender: FDA-Public Use
  Company Number: None

PATIENT
  Age: 31 Year
  Sex: Male
  Weight: 71.67 kg

DRUGS (10)
  1. HYDROCODONE/ACETOMENAPHEN [Concomitant]
  2. VESICARE [Suspect]
     Active Substance: SOLIFENACIN SUCCINATE
     Indication: NEPHROLITHIASIS
     Route: 048
     Dates: start: 20150615, end: 20150615
  3. PHENAZOPYRIDINE. [Concomitant]
     Active Substance: PHENAZOPYRIDINE
  4. NAPROXEN. [Concomitant]
     Active Substance: NAPROXEN
  5. CIPROFLOXIN [Concomitant]
     Active Substance: CIPROFLOXACIN
  6. RAPAFLO [Concomitant]
     Active Substance: SILODOSIN
  7. MENS MULTIVITAMIN [Concomitant]
  8. VICODIN [Concomitant]
     Active Substance: ACETAMINOPHEN\HYDROCODONE BITARTRATE
  9. SAW PALMETTO [Concomitant]
     Active Substance: SAW PALMETTO
  10. VITAMIN C [Concomitant]
     Active Substance: ASCORBIC ACID

REACTIONS (8)
  - Depression [None]
  - Anger [None]
  - Vertigo [None]
  - Confusional state [None]
  - Aggression [None]
  - Suicidal ideation [None]
  - Palpitations [None]
  - Depressed mood [None]

NARRATIVE: CASE EVENT DATE: 20150615
